FAERS Safety Report 15634080 (Version 1)
Quarter: 2018Q4

REPORT INFORMATION
  Report Type: Spontaneous
  Country: US (occurrence: US)
  Receive Date: 20181119
  Receipt Date: 20181119
  Transmission Date: 20190205
  Serious: No
  Sender: FDA-Public Use
  Company Number: US-COLLEGIUM PHARMACEUTICAL, INC.-2018CGM00315

PATIENT
  Sex: Male
  Weight: 65.76 kg

DRUGS (3)
  1. XTAMPZA ER [Suspect]
     Active Substance: OXYCODONE
     Indication: PAIN
     Dosage: 54 MG, 2X/DAY
     Route: 048
  2. UNSPECIFIED VITAMINS [Concomitant]
     Active Substance: VITAMINS
  3. XTAMPZA ER [Suspect]
     Active Substance: OXYCODONE
     Dosage: 27 MG, 2X/DAY
     Route: 048

REACTIONS (6)
  - Body height decreased [Unknown]
  - Weight decreased [Unknown]
  - Red blood cell abnormality [Unknown]
  - Therapeutic response shortened [Not Recovered/Not Resolved]
  - Retching [Unknown]
  - Drug effect incomplete [Not Recovered/Not Resolved]
